FAERS Safety Report 19205959 (Version 1)
Quarter: 2021Q2

REPORT INFORMATION
  Report Type: Spontaneous
  Country: GB (occurrence: GB)
  Receive Date: 20210503
  Receipt Date: 20210503
  Transmission Date: 20210717
  Serious: Yes (Other)
  Sender: FDA-Public Use
  Company Number: GB-MYLANLABS-2021M1025700

PATIENT
  Age: 20 Year
  Sex: Female
  Weight: 48 kg

DRUGS (4)
  1. TRAMADOL. [Suspect]
     Active Substance: TRAMADOL
     Indication: PRODUCT USED FOR UNKNOWN INDICATION
     Dosage: 50 MILLIGRAM, TID
     Dates: start: 20210422
  2. PERMETHRIN. [Concomitant]
     Active Substance: PERMETHRIN
     Dosage: USE AS DIRECTED
     Dates: start: 20210128, end: 20210129
  3. LIDOCAINE. [Concomitant]
     Active Substance: LIDOCAINE
     Dosage: USE AS DIRECTED
     Dates: start: 20210202, end: 20210203
  4. AMITRIPTYLINE HYDROCHLORIDE. [Concomitant]
     Active Substance: AMITRIPTYLINE HYDROCHLORIDE
     Dosage: TAKE ONE AT NIGHT THEN INCREASE BY 1 TABLET EVERY WEEK IF NEEDED UP TO 4 TABLETS EVERY NIGHT
     Dates: start: 20210426

REACTIONS (3)
  - Dizziness [Unknown]
  - Feeling abnormal [Unknown]
  - Tremor [Recovered/Resolved]

NARRATIVE: CASE EVENT DATE: 20210426
